FAERS Safety Report 6399706-7 (Version None)
Quarter: 2009Q4

REPORT INFORMATION
  Report Type: 
  Country: None (occurrence: None)
  Receive Date: 20091014
  Receipt Date: 20091006
  Transmission Date: 20100525
  Serious: Yes (Death)
  Sender: FDA-Public Use
  Company Number: GB-ROCHE-661351

PATIENT
  Age: 18 Year
  Sex: Female

DRUGS (1)
  1. ROACCUTANE [Suspect]
     Route: 048
     Dates: end: 20090909

REACTIONS (4)
  - ASTIGMATISM [None]
  - CORNEAL DISORDER [None]
  - DRY EYE [None]
  - KERATITIS [None]
